FAERS Safety Report 4506438-6 (Version None)
Quarter: 2004Q4

REPORT INFORMATION
  Report Type: 
  Country: None (occurrence: None)
  Receive Date: 20041117
  Receipt Date: 20041104
  Transmission Date: 20050328
  Serious: Yes (Other)
  Sender: FDA-Public Use
  Company Number: 2004087759

PATIENT
  Sex: Female

DRUGS (3)
  1. BENADRYL (DIPHENHYDRAMINE) [Suspect]
     Indication: HYPERSENSITIVITY
     Dosage: ORAL
     Route: 048
  2. VITAMINS (VITAMINS) [Concomitant]
  3. ACETYLSALYCYLIC ACID (ACETYLSALICYLIC ACID) [Concomitant]

REACTIONS (9)
  - ACCIDENT AT WORK [None]
  - ARTHRALGIA [None]
  - ASTHMA [None]
  - BACK PAIN [None]
  - HYSTERECTOMY [None]
  - KNEE OPERATION [None]
  - LIMB INJURY [None]
  - PNEUMONIA MYCOPLASMAL [None]
  - TOOTH DISORDER [None]
